FAERS Safety Report 25631355 (Version 2)
Quarter: 2025Q3

REPORT INFORMATION
  Report Type: Report from Study
  Country: US (occurrence: US)
  Receive Date: 20250801
  Receipt Date: 20250818
  Transmission Date: 20251020
  Serious: Yes (Hospitalization)
  Sender: ARGENX BVBA
  Company Number: US-ARGENX-2025-ARGX-US009948

PATIENT

DRUGS (1)
  1. EFGARTIGIMOD ALFA-FCAB [Suspect]
     Active Substance: EFGARTIGIMOD ALFA-FCAB
     Indication: Myasthenia gravis
     Route: 042
     Dates: start: 2022

REACTIONS (3)
  - Oesophagitis [Recovering/Resolving]
  - Cough [Recovered/Resolved]
  - Dyspnoea [Recovered/Resolved]

NARRATIVE: CASE EVENT DATE: 20250725
